FAERS Safety Report 12386549 (Version 1)
Quarter: 2016Q2

REPORT INFORMATION
  Report Type: Spontaneous
  Country: US (occurrence: US)
  Receive Date: 20160519
  Receipt Date: 20160519
  Transmission Date: 20160815
  Serious: No
  Sender: FDA-Public Use
  Company Number: US-ASCEND THERAPEUTICS-1052491

PATIENT
  Sex: Female

DRUGS (2)
  1. NORETHINDRONE. [Concomitant]
     Active Substance: NORETHINDRONE
     Route: 048
     Dates: start: 20160402, end: 20160411
  2. ESTROGEL [Suspect]
     Active Substance: ESTRADIOL
     Route: 062
     Dates: start: 20160402, end: 20160411

REACTIONS (4)
  - Fatigue [Recovered/Resolved]
  - Alopecia [Recovered/Resolved]
  - Headache [Recovered/Resolved]
  - Abdominal distension [Recovered/Resolved]
